FAERS Safety Report 7184990-2 (Version None)
Quarter: 2010Q4

REPORT INFORMATION
  Report Type: 
  Country: None (occurrence: None)
  Receive Date: 20101222
  Receipt Date: 20101209
  Transmission Date: 20110411
  Serious: Yes (Other)
  Sender: FDA-Public Use
  Company Number: JP-MERCK-1011USA00067

PATIENT
  Age: 78 Year
  Sex: Male

DRUGS (3)
  1. JANUVIA [Suspect]
     Indication: TYPE 2 DIABETES MELLITUS
     Route: 048
     Dates: start: 20100703, end: 20101007
  2. PEPCID RPD [Concomitant]
     Route: 048
     Dates: start: 20101007
  3. MARZULENE-S [Concomitant]
     Route: 065
     Dates: start: 20101007

REACTIONS (1)
  - IDIOPATHIC THROMBOCYTOPENIC PURPURA [None]
